FAERS Safety Report 6580961-5 (Version None)
Quarter: 2010Q1

REPORT INFORMATION
  Report Type: 
  Country: None (occurrence: None)
  Receive Date: 20100215
  Receipt Date: 20100203
  Transmission Date: 20100710
  Serious: Yes (Death, Congenital Anomaly)
  Sender: FDA-Public Use
  Company Number: RU-BAYER-200942382GPV

PATIENT
  Age: 4 Month

DRUGS (1)
  1. MIRENA [Suspect]
     Indication: CONTRACEPTION

REACTIONS (2)
  - INTRA-UTERINE DEATH [None]
  - INTRAUTERINE INFECTION [None]
